FAERS Safety Report 6548972-3 (Version None)
Quarter: 2010Q1

REPORT INFORMATION
  Report Type: 
  Country: None (occurrence: None)
  Receive Date: 20100125
  Receipt Date: 20100114
  Transmission Date: 20100710
  Serious: Yes (Hospitalization, Other)
  Sender: FDA-Public Use
  Company Number: US-BAYER-200941150NA

PATIENT
  Sex: Female
  Weight: 48 kg

DRUGS (1)
  1. BETASERON [Suspect]
     Indication: MULTIPLE SCLEROSIS
     Route: 065
     Dates: end: 20090101

REACTIONS (2)
  - KIDNEY INFECTION [None]
  - RENAL FAILURE [None]
